FAERS Safety Report 15474611 (Version 1)
Quarter: 2018Q4

REPORT INFORMATION
  Report Type: Spontaneous
  Country: IT (occurrence: IT)
  Receive Date: 20181008
  Receipt Date: 20181008
  Transmission Date: 20190205
  Serious: Yes (Life-Threatening)
  Sender: FDA-Public Use
  Company Number: IT-PFIZER INC-16754

PATIENT
  Age: 51 Year
  Sex: Female

DRUGS (1)
  1. ANZATAX (PACLITAXEL) [Suspect]
     Active Substance: PACLITAXEL
     Indication: CHEMOTHERAPY SINGLE AGENT SYSTEMIC
     Dosage: 175 MG/M2, FREQ: CYCLICAL
     Route: 041
     Dates: start: 20070320, end: 20070320

REACTIONS (4)
  - Cyanosis [Recovered/Resolved]
  - Flushing [Recovered/Resolved]
  - Hypotension [Recovered/Resolved]
  - Dyspnoea [Recovered/Resolved]

NARRATIVE: CASE EVENT DATE: 20070320
